APPROVED DRUG PRODUCT: CAPOZIDE 25/15
Active Ingredient: CAPTOPRIL; HYDROCHLOROTHIAZIDE
Strength: 25MG;15MG **Federal Register determination that product was not discontinued or withdrawn for safety or effectiveness reasons**
Dosage Form/Route: TABLET;ORAL
Application: N018709 | Product #001
Applicant: APOTHECON INC DIV BRISTOL MYERS SQUIBB
Approved: Oct 12, 1984 | RLD: Yes | RS: No | Type: DISCN